FAERS Safety Report 9916837 (Version 1)
Quarter: 2014Q1

REPORT INFORMATION
  Report Type: Spontaneous
  Country: US (occurrence: US)
  Receive Date: 20140221
  Receipt Date: 20140221
  Transmission Date: 20141002
  Serious: No
  Sender: FDA-Public Use
  Company Number: US-MYLANLABS-2013S1025310

PATIENT
  Age: 57 Year
  Sex: Female
  Weight: 71.67 kg

DRUGS (3)
  1. SERTRALINE TABLETS [Suspect]
     Indication: PAIN
     Route: 048
     Dates: start: 201310
  2. SERTRALINE TABLETS [Suspect]
     Indication: OFF LABEL USE
     Route: 048
     Dates: start: 201310
  3. LAMICTAL [Concomitant]
     Route: 048

REACTIONS (2)
  - Drug ineffective for unapproved indication [Not Recovered/Not Resolved]
  - Pain [Not Recovered/Not Resolved]
